FAERS Safety Report 7311534-4 (Version None)
Quarter: 2011Q1

REPORT INFORMATION
  Report Type: 
  Country: None (occurrence: None)
  Receive Date: 20110216
  Receipt Date: 20110216
  Transmission Date: 20110831
  Serious: Yes (Life-Threatening, Other)
  Sender: FDA-Public Use
  Company Number: None

PATIENT
  Age: 68 Year
  Sex: Female
  Weight: 78.4723 kg

DRUGS (1)
  1. FENOFIBRATE [Suspect]
     Indication: BLOOD TRIGLYCERIDES INCREASED
     Dosage: 1 TAB ONCE A DAY PO
     Route: 048
     Dates: start: 20101108, end: 20110207

REACTIONS (6)
  - PULMONARY EMBOLISM [None]
  - DIZZINESS [None]
  - CELLULITIS [None]
  - DEEP VEIN THROMBOSIS [None]
  - NAUSEA [None]
  - DYSPNOEA [None]
